FAERS Safety Report 15399294 (Version 2)
Quarter: 2018Q3

REPORT INFORMATION
  Report Type: Spontaneous
  Country: IT (occurrence: IT)
  Receive Date: 20180918
  Receipt Date: 20180925
  Transmission Date: 20181010
  Serious: Yes (Death, Other)
  Sender: FDA-Public Use
  Company Number: IT-SA-2018SA257716

PATIENT
  Age: 1 Year
  Sex: Female

DRUGS (1)
  1. MYOZYME [Suspect]
     Active Substance: ALGLUCOSIDASE ALFA
     Indication: GLYCOGEN STORAGE DISEASE TYPE II
     Dosage: 20 MG/KG
     Route: 041
     Dates: start: 201807, end: 201808

REACTIONS (8)
  - Hypertrophic cardiomyopathy [Fatal]
  - Cardiomegaly [Fatal]
  - Cardiac arrest [Fatal]
  - Ventricular dysfunction [Fatal]
  - Ejection fraction decreased [Fatal]
  - Condition aggravated [Fatal]
  - Atelectasis [Fatal]
  - Respiratory failure [Fatal]

NARRATIVE: CASE EVENT DATE: 201808
